FAERS Safety Report 4555843-0 (Version None)
Quarter: 2005Q1

REPORT INFORMATION
  Report Type: 
  Country: None (occurrence: None)
  Receive Date: 20050118
  Receipt Date: 20040818
  Transmission Date: 20050727
  Serious: Yes (Hospitalization)
  Sender: FDA-Public Use
  Company Number: A001-002-006183

PATIENT
  Age: 51 Year
  Sex: Male
  Weight: 63.6 kg

DRUGS (31)
  1. ARICEPT [Suspect]
     Dosage: ORAL
     Route: 048
  2. ARANESP [Suspect]
     Indication: ANAEMIA OF MALIGNANT DISEASE
     Dosage: 200 MCG, SUBCUTANEOUS
     Route: 058
     Dates: start: 20030821
  3. MARINOL [Suspect]
  4. KYTRIL [Suspect]
     Dosage: INTRAVENOUS (NOT
     Route: 042
     Dates: start: 20030828, end: 20030828
  5. OXYCONTIN [Suspect]
     Dosage: 20 MG, 1 IN 12 HR
     Dates: start: 20030806, end: 20030905
  6. NEURONTIN [Suspect]
  7. AMBIEN [Suspect]
  8. OXYCODONE HCL [Suspect]
     Dosage: 5 MG, 1 IN 4 HR
     Dates: start: 20030901
  9. MORPHINE SULFATE [Concomitant]
  10. CHLORPROMAZINE [Concomitant]
  11. PROGRAF [Concomitant]
  12. PROTONIX [Concomitant]
  13. PRANDIN [Concomitant]
  14. ZOLOFT [Concomitant]
  15. GLIPIZIDE [Concomitant]
  16. PROCARDIA [Concomitant]
  17. MAGNESIUM [Concomitant]
  18. LEVAQUIN [Concomitant]
  19. PENTAMIDINE [Concomitant]
  20. PERI-COLACE [Concomitant]
  21. DULCOLAX [Concomitant]
  22. ASPIRIN [Concomitant]
  23. DEXAMETHASONE [Concomitant]
  24. ADRIAMYCIN PFS [Concomitant]
  25. CISPLATIN [Concomitant]
  26. SENOKOT [Concomitant]
  27. INDERAL [Concomitant]
  28. MULTI-VITAMINS [Concomitant]
  29. INSULIN [Concomitant]
  30. ALDACTONE [Concomitant]
  31. MEGACE [Concomitant]

REACTIONS (2)
  - CONVULSION [None]
  - MENTAL STATUS CHANGES [None]
